FAERS Safety Report 19190073 (Version 3)
Quarter: 2021Q3

REPORT INFORMATION
  Report Type: Spontaneous
  Country: US (occurrence: US)
  Receive Date: 20210428
  Receipt Date: 20210720
  Transmission Date: 20211014
  Serious: Yes (Other)
  Sender: FDA-Public Use
  Company Number: US-GLAXOSMITHKLINE-US2021090115

PATIENT
  Age: 67 Year
  Sex: Male

DRUGS (1)
  1. ANORO ELLIPTA [Suspect]
     Active Substance: UMECLIDINIUM BROMIDE\VILANTEROL TRIFENATATE
     Indication: CHRONIC OBSTRUCTIVE PULMONARY DISEASE
     Dosage: 1 PUFF(S), 1D, 62.5/25MCG
     Route: 055

REACTIONS (4)
  - Cough [Recovered/Resolved]
  - Foreign body in throat [Recovered/Resolved]
  - Overdose [Unknown]
  - Product complaint [Unknown]

NARRATIVE: CASE EVENT DATE: 20210421
